FAERS Safety Report 7548859-3 (Version None)
Quarter: 2011Q2

REPORT INFORMATION
  Report Type: 
  Country: None (occurrence: None)
  Receive Date: 20110608
  Receipt Date: 20110601
  Transmission Date: 20111010
  Serious: Yes (Life-Threatening)
  Sender: FDA-Public Use
  Company Number: 2011SP025397

PATIENT
  Age: 42 Year
  Sex: Female

DRUGS (4)
  1. SINGULAIR [Concomitant]
  2. GANIRELIX ACETATE INJECTION [Suspect]
     Indication: INFERTILITY
     Dates: start: 20110301, end: 20110601
  3. ZYRTEC [Concomitant]
  4. ALBUTEROL SULFATE AUTOHALER [Concomitant]

REACTIONS (4)
  - EYE PRURITUS [None]
  - DYSPNOEA [None]
  - BLOOD PRESSURE INCREASED [None]
  - WHEEZING [None]
